FAERS Safety Report 20715329 (Version 1)
Quarter: 2022Q2

REPORT INFORMATION
  Report Type: Spontaneous
  Country: GB (occurrence: None)
  Receive Date: 20220415
  Receipt Date: 20220415
  Transmission Date: 20220721
  Serious: Yes (Other)
  Sender: FDA-Public Use
  Company Number: 2022A143416

PATIENT
  Age: 44 Year
  Sex: Male

DRUGS (2)
  1. ESOMEPRAZOLE [Suspect]
     Active Substance: ESOMEPRAZOLE
     Indication: Gastrooesophageal reflux disease
     Dosage: 40MG ONCE DAILY, TAKEN IN MORNING;
     Route: 065
     Dates: start: 19960401, end: 20220402
  2. FLUOXETINE [Concomitant]
     Active Substance: FLUOXETINE HYDROCHLORIDE
     Indication: Depression
     Route: 065
     Dates: start: 20200101

REACTIONS (2)
  - Vitamin B12 deficiency [Not Recovered/Not Resolved]
  - Medication error [Unknown]
